FAERS Safety Report 9210770 (Version 1)
Quarter: 2013Q2

REPORT INFORMATION
  Report Type: Spontaneous
  Country: DE (occurrence: DE)
  Receive Date: 20130404
  Receipt Date: 20130404
  Transmission Date: 20140414
  Serious: Yes (Congenital Anomaly, Other)
  Sender: FDA-Public Use
  Company Number: GXKR2013DE001319

PATIENT
  Sex: Male
  Weight: 3.4 kg

DRUGS (3)
  1. LAMOTRIGINE [Suspect]
     Dosage: 275 MG, (150-0-125)
     Route: 064
  2. VALPROATE SODIUM [Suspect]
     Dosage: 600 MG, (300-0-300)
     Route: 064
  3. FOLIO [Concomitant]
     Indication: PROPHYLAXIS OF NEURAL TUBE DEFECT
     Dosage: 0.4 MG DAILY
     Route: 064

REACTIONS (3)
  - Aplasia cutis congenita [Not Recovered/Not Resolved]
  - Transient tachypnoea of the newborn [Recovered/Resolved]
  - Foetal exposure during pregnancy [Unknown]
